FAERS Safety Report 25878416 (Version 2)
Quarter: 2025Q4

REPORT INFORMATION
  Report Type: Spontaneous
  Country: EU (occurrence: EU)
  Receive Date: 20251003
  Receipt Date: 20251015
  Transmission Date: 20260118
  Serious: Yes (Hospitalization)
  Sender: INSUD PHARMA
  Company Number: EU-INSUD PHARMA-2509FR08114

PATIENT

DRUGS (9)
  1. NUVESSA [Suspect]
     Active Substance: METRONIDAZOLE
     Indication: Urinary tract infection
     Dosage: UNK
     Route: 065
  2. RISPERIDONE [Suspect]
     Active Substance: RISPERIDONE
     Indication: Antipsychotic therapy
     Dosage: 0.5 MG IN THE MORNING
     Route: 065
  3. LOXAPINE [Suspect]
     Active Substance: LOXAPINE
     Indication: Antipsychotic therapy
     Dosage: 25 MILLIGRAM, OCCASIONAL ADMINISTRATION
     Route: 030
  4. VENLAFAXINE [Concomitant]
     Active Substance: VENLAFAXINE HYDROCHLORIDE
     Dosage: 37.5 MG/DAY
  5. RIVAROXABAN [Concomitant]
     Active Substance: RIVAROXABAN
  6. LANSOPRAZOLE [Concomitant]
     Active Substance: LANSOPRAZOLE
  7. ALLOPURINOL [Concomitant]
     Active Substance: ALLOPURINOL
  8. DUTASTERIDE [Concomitant]
     Active Substance: DUTASTERIDE
  9. CEFTRIAXONE [Concomitant]
     Active Substance: CEFTRIAXONE
     Indication: Urinary tract infection

REACTIONS (12)
  - Catatonia [Recovered/Resolved]
  - Behaviour disorder [Unknown]
  - Condition aggravated [Unknown]
  - Confusional state [Unknown]
  - Disorientation [Unknown]
  - Persecutory delusion [Recovered/Resolved]
  - Verbigeration [Unknown]
  - Agitation [Unknown]
  - Negativism [Recovered/Resolved]
  - Mutism [Recovered/Resolved]
  - Muscle rigidity [Recovered/Resolved]
  - Staring [Recovered/Resolved]
